FAERS Safety Report 24058090 (Version 1)
Quarter: 2024Q3

REPORT INFORMATION
  Report Type: Spontaneous
  Country: US (occurrence: US)
  Receive Date: 20240707
  Receipt Date: 20240707
  Transmission Date: 20241016
  Serious: Yes (Other)
  Sender: BRISTOL MYERS SQUIBB
  Company Number: US-BRISTOL-MYERS SQUIBB COMPANY-2024-105298

PATIENT
  Age: 81 Year
  Sex: Female
  Weight: 88.45 kg

DRUGS (28)
  1. REVLIMID [Suspect]
     Active Substance: LENALIDOMIDE
     Indication: Plasma cell myeloma
     Route: 048
     Dates: start: 20240515
  2. REVLIMID [Suspect]
     Active Substance: LENALIDOMIDE
     Dosage: TAKE 1 CAPSULE BY MOUTH EVERY DAY FOR 21 DAYS FOLLOWED BY 7 DAYS REST, TAKE WHOLE WITH WATER WITH OR
     Route: 048
  3. ELIQUIS [Concomitant]
     Active Substance: APIXABAN
     Dosage: TAKE 1 TABLET BY MOUTH TWICE DAILY
     Route: 048
  4. PREGABALIN [Concomitant]
     Active Substance: PREGABALIN
     Dosage: TAKE 1 CAPSULE BY MOUTH EVERY EVENING, MAX DAILY AMOUNT 50 MG
     Route: 048
  5. PREGABALIN [Concomitant]
     Active Substance: PREGABALIN
     Dosage: TAKE 1 CAPSULE BY MOUTH EVERY NIGHT, MAX DAILY AMOUNT 100 MG
     Route: 048
  6. AREXVY [Concomitant]
     Active Substance: RECOMBINANT RESPIRATORY SYNCYTIAL VIRUS PRE-FUSION F PROTEIN ANTIGEN
     Dosage: (10 PACK) ADMINISTER 0.5 ML IN MUSCLE AS DIRECTED TODAY
     Route: 030
  7. CARVEDILOL [Concomitant]
     Active Substance: CARVEDILOL
     Dosage: ER, TAKE 1 CAPSULE BY MOTH DAILY, STOP THE METOPROLOL WHEN YOU PICK UP THIS MEDICATION.
     Route: 048
  8. CARVEDILOL [Concomitant]
     Active Substance: CARVEDILOL
     Dosage: ER, TAKE 1 CAPSULE BY MOTH DAILY, STOP THE METOPROLOL WHEN YOU PICK UP THIS MEDICATION
     Route: 048
  9. METOPROLOL [Concomitant]
     Active Substance: METOPROLOL
  10. DAVESOMERAN\ELASOMERAN [Concomitant]
     Active Substance: DAVESOMERAN\ELASOMERAN
     Dosage: ADMINISTER 0.5 ML IN THE MUSCLE TODAY
     Route: 030
  11. DEXAMETHASONE [Concomitant]
     Active Substance: DEXAMETHASONE
     Dosage: TAKE 5 TABLETS BY MOUTH ONE DAY A WEEK
     Route: 048
  12. DICLOFENAC [Concomitant]
     Active Substance: DICLOFENAC
     Dosage: 100GM (RX), 50GM (OTC): APPLY 4 GM TOPICALLY TO THE AFFECTED AREA 4 TIMES A DAY
     Route: 061
  13. DOXYCYCLINE HYCLATE [Concomitant]
     Active Substance: DOXYCYCLINE HYCLATE
     Dosage: TAKE 1 TABLET BY MOUTH TWICE DAILY FOR 7 DAYS
     Route: 048
  14. FUROSEMIDE [Concomitant]
     Active Substance: FUROSEMIDE
     Dosage: TAKE 1 TABLET BY MOUTH ONCE FOR 1 DOSE
     Route: 048
  15. FUROSEMIDE [Concomitant]
     Active Substance: FUROSEMIDE
     Dosage: TAKE 1 TABLET BY MOUTH DAILY
     Route: 048
  16. GABAPENTIN [Concomitant]
     Active Substance: GABAPENTIN
     Dosage: TAKE 1 CAPSULE BY MOUTH 3 TIMES A DAILY AS NEEDED
     Route: 048
  17. IBUPROFEN [Concomitant]
     Active Substance: IBUPROFEN
     Indication: Pain
     Dosage: TAKE 1 TABLET BY MOUTH DAILY AS NEEDED FOR PAIN OR SEVERE PAIN
     Route: 048
  18. LETROZOLE [Concomitant]
     Active Substance: LETROZOLE
     Dosage: TAKE 1 TABLET BY MOUTH DAILY
     Route: 048
  19. NEOMYCIN AND POLYMYXIN B SULFATES AND HYDROCORTISONE [Concomitant]
     Active Substance: HYDROCORTISONE\NEOMYCIN SULFATE\POLYMYXIN B SULFATE
     Dosage: OTIC SUSP GREEN (EAR), SHAKE LIQUID AND INSTALL 4 DROPS TO AFFECTED EAR THREE TIMES A DAY
  20. ONDANSETRON [Concomitant]
     Active Substance: ONDANSETRON
     Indication: Nausea
     Dosage: DISSOLVE 1 TABLET ON THE TONGUE THREE TIMES DAILY AS NEEDED FOR NAUSEA AND VOMITING
     Route: 048
  21. ONDANSETRON [Concomitant]
     Active Substance: ONDANSETRON
     Indication: Vomiting
  22. OXYCODONE [Concomitant]
     Active Substance: OXYCODONE
     Dosage: IMMEDIATE RELEASE, TAKE 1 TABLET BY MOUTH EVERY 6 HOURS AS NEEDED
     Route: 048
  23. POTASSIUM CHLORIDE [Concomitant]
     Active Substance: POTASSIUM CHLORIDE
     Dosage: ER, TAKE 1 TABLET BY MOUTH TWICE DAILY
     Route: 048
  24. POTASSIUM CHLORIDE [Concomitant]
     Active Substance: POTASSIUM CHLORIDE
     Dosage: ER, TAKE 1 TABLET BY MOUTH DAILY
     Route: 048
  25. PREDNISONE [Concomitant]
     Active Substance: PREDNISONE
     Dosage: PACK 21S, FOLLOW PACKAGE DIRECTION
  26. SPIKEVAX [Concomitant]
     Dosage: 12+ (COVID) 23-24 PFS, ADMINISTER 0.5 ML IN THE MUSCLE TODAY
     Route: 030
  27. SULFAMETHOXAZOLE\TRIMETHOPRIM [Concomitant]
     Active Substance: SULFAMETHOXAZOLE\TRIMETHOPRIM
     Dosage: 800/160MG TB, TAKE 1 TABLET BY MOUTH TWICE DAILY FOR 7 DAYS
     Route: 048
  28. VALSARTAN [Concomitant]
     Active Substance: VALSARTAN
     Dosage: TAKE 1 TABLET BY MOUTH DAILY.
     Route: 048

REACTIONS (3)
  - Full blood count abnormal [Unknown]
  - Thrombosis [Unknown]
  - Plasma cell myeloma [Unknown]

NARRATIVE: CASE EVENT DATE: 20240601
